FAERS Safety Report 24203535 (Version 2)
Quarter: 2024Q3

REPORT INFORMATION
  Report Type: Spontaneous
  Country: IT (occurrence: IT)
  Receive Date: 20240813
  Receipt Date: 20240926
  Transmission Date: 20241017
  Serious: Yes (Death, Other)
  Sender: AUROBINDO
  Company Number: IT-ROCHE-3469550

PATIENT
  Age: 46 Year
  Sex: Male

DRUGS (10)
  1. CARBOPLATIN [Suspect]
     Active Substance: CARBOPLATIN
     Indication: Small cell lung cancer
     Dosage: 745 MILLIGRAM, 3 WEEKS (LAST DOSE WAS ADMINISTERED ON 22-NOV-2023)
     Route: 065
     Dates: start: 20231102
  2. CARBOPLATIN [Suspect]
     Active Substance: CARBOPLATIN
     Dosage: 605 MILLIGRAM (5MG/AUC, 3 WEEKS)
     Route: 065
     Dates: start: 20231102
  3. ATEZOLIZUMAB [Suspect]
     Active Substance: ATEZOLIZUMAB
     Indication: Small cell lung cancer
     Dosage: 1200 MILLIGRAM (ON 22/NOV/2023, LAST DOSE RECEIVED)
     Route: 065
     Dates: start: 20231102, end: 20231122
  4. ATEZOLIZUMAB [Suspect]
     Active Substance: ATEZOLIZUMAB
     Dosage: 1200 MILLIGRAM (ON 22/NOV/2023, LAST DOSE RECEIVED)
     Route: 065
     Dates: start: 20231102, end: 20231220
  5. ETOPOSIDE [Suspect]
     Active Substance: ETOPOSIDE
     Indication: Small cell lung cancer
     Dosage: 193 MILLIGRAM, 3 WEEK (LAST DOSE WAS ADMINISTERED ON 22-NOV-2023)
     Route: 065
     Dates: start: 20231102
  6. ETOPOSIDE [Suspect]
     Active Substance: ETOPOSIDE
     Dosage: 142 MILLIGRAM (100MG/MQ, 3 WEEKS)
     Route: 065
     Dates: start: 20231102, end: 20231220
  7. UMECLIDINIUM BROMIDE [Concomitant]
     Active Substance: UMECLIDINIUM BROMIDE
     Indication: Product used for unknown indication
     Dosage: 55 MICROGRAM
     Route: 065
  8. PANTOPRAZOLE [Concomitant]
     Active Substance: PANTOPRAZOLE
     Indication: Product used for unknown indication
     Dosage: UNK
     Route: 065
  9. ENTECAVIR [Concomitant]
     Active Substance: ENTECAVIR
     Indication: Product used for unknown indication
     Dosage: 1 MILLIGRAM
     Route: 065
  10. TOPOTECAN [Concomitant]
     Active Substance: TOPOTECAN HYDROCHLORIDE
     Indication: Product used for unknown indication
     Dosage: 1.5 MILLIGRAM
     Route: 065
     Dates: start: 20240415, end: 20240529

REACTIONS (3)
  - Disease progression [Fatal]
  - Neutropenia [Recovered/Resolved]
  - Mucosal inflammation [Recovered/Resolved]

NARRATIVE: CASE EVENT DATE: 20231103
